FAERS Safety Report 22238772 (Version 1)
Quarter: 2023Q2

REPORT INFORMATION
  Report Type: Spontaneous
  Country: US (occurrence: US)
  Receive Date: 20230421
  Receipt Date: 20230421
  Transmission Date: 20230721
  Serious: No
  Sender: FDA-Public Use
  Company Number: US-ALMIRALL, LLC-2022AQU000106

PATIENT

DRUGS (1)
  1. ACZONE [Suspect]
     Active Substance: DAPSONE
     Indication: Skin disorder
     Dosage: UNK
     Route: 061
     Dates: start: 2022

REACTIONS (2)
  - Off label use [Unknown]
  - Drug ineffective for unapproved indication [Unknown]
